FAERS Safety Report 9495089 (Version 1)
Quarter: 2013Q3

REPORT INFORMATION
  Report Type: Spontaneous
  Country: US (occurrence: US)
  Receive Date: 20130903
  Receipt Date: 20130903
  Transmission Date: 20140515
  Serious: Yes (Other)
  Sender: FDA-Public Use
  Company Number: US-BAYER-2013-104114

PATIENT
  Age: 28 Year
  Sex: Female

DRUGS (3)
  1. OCELLA [Suspect]
     Indication: CONTRACEPTION
  2. OCELLA [Suspect]
     Indication: ENDOMETRIOSIS
  3. OCELLA [Suspect]
     Indication: PROPHYLAXIS

REACTIONS (4)
  - Stevens-Johnson syndrome [None]
  - Skin exfoliation [None]
  - Cyst [None]
  - Malaise [None]
